FAERS Safety Report 9150958 (Version 1)
Quarter: 2013Q1

REPORT INFORMATION
  Report Type: Spontaneous
  Country: US (occurrence: US)
  Receive Date: 20130308
  Receipt Date: 20130308
  Transmission Date: 20140127
  Serious: No
  Sender: FDA-Public Use
  Company Number: US-GLAXOSMITHKLINE-A0978583A

PATIENT
  Age: 5 Year
  Sex: Female

DRUGS (1)
  1. OLUX-E FOAM 0.05% [Suspect]
     Indication: LICHEN SCLEROSUS
     Dosage: 1APP TWICE PER DAY
     Route: 061
     Dates: start: 20120508

REACTIONS (3)
  - Diarrhoea [Not Recovered/Not Resolved]
  - Vulvovaginal erythema [Unknown]
  - Vulvovaginal discomfort [Unknown]
